FAERS Safety Report 20383654 (Version 3)
Quarter: 2022Q1

REPORT INFORMATION
  Report Type: Spontaneous
  Country: CA (occurrence: CA)
  Receive Date: 20220127
  Receipt Date: 20220331
  Transmission Date: 20220423
  Serious: Yes (Other)
  Sender: FDA-Public Use
  Company Number: CA-PFIZER INC-202200119834

PATIENT
  Age: 53 Year
  Sex: Female
  Weight: 54 kg

DRUGS (1)
  1. XELJANZ [Suspect]
     Active Substance: TOFACITINIB CITRATE
     Indication: Colitis ulcerative
     Dosage: 10 MG, 2X/DAY
     Route: 048
     Dates: start: 202112, end: 20220119

REACTIONS (12)
  - COVID-19 [Not Recovered/Not Resolved]
  - Epistaxis [Not Recovered/Not Resolved]
  - Bronchial disorder [Unknown]
  - Therapeutic response shortened [Unknown]
  - Dysuria [Recovering/Resolving]
  - Abnormal faeces [Unknown]
  - Abdominal distension [Unknown]
  - Abdominal discomfort [Unknown]
  - Chest discomfort [Recovering/Resolving]
  - Pyrexia [Recovered/Resolved]
  - Arthralgia [Unknown]
  - Neck pain [Unknown]

NARRATIVE: CASE EVENT DATE: 20220101
